FAERS Safety Report 6439144-1 (Version None)
Quarter: 2009Q4

REPORT INFORMATION
  Report Type: 
  Country: None (occurrence: None)
  Receive Date: 20091113
  Receipt Date: 20091110
  Transmission Date: 20100525
  Serious: Yes (Death)
  Sender: FDA-Public Use
  Company Number: FR-BRISTOL-MYERS SQUIBB COMPANY-14849780

PATIENT
  Age: 53 Year
  Sex: Male

DRUGS (8)
  1. APROVEL TABS 300 MG [Suspect]
  2. ELISOR TABS 20 MG [Suspect]
  3. AMOXICILLIN [Suspect]
     Dosage: AMOXICILLIN SODIUM
     Dates: start: 20090101
  4. REMICADE [Suspect]
     Dosage: LAST INFUSION:25NOV08 (9TH INF)
     Dates: start: 20070921, end: 20081125
  5. METHOTREXATE [Suspect]
     Indication: MUSCULOSKELETAL PAIN
     Route: 048
     Dates: end: 20090124
  6. ARIXTRA [Suspect]
     Dosage: 1 DF=5MG/0.4ML
     Dates: start: 20080901
  7. LASILIX FAIBLE [Suspect]
     Dosage: LASILIX FAIBLE 20 MG TABS
  8. ISOPTIN SR [Suspect]
     Dosage: ISOPTINE LP 240MG TABS

REACTIONS (2)
  - MULTI-ORGAN FAILURE [None]
  - PNEUMONIA LEGIONELLA [None]
